FAERS Safety Report 18534902 (Version 1)
Quarter: 2020Q4

REPORT INFORMATION
  Report Type: Spontaneous
  Country: FR (occurrence: FR)
  Receive Date: 20201123
  Receipt Date: 20201123
  Transmission Date: 20210114
  Serious: Yes (Other)
  Sender: FDA-Public Use
  Company Number: FR-SEPTODONT-202005980

PATIENT
  Sex: Female

DRUGS (1)
  1. SEPTANEST [Suspect]
     Active Substance: ARTICAINE HYDROCHLORIDE\EPINEPHRINE BITARTRATE
     Indication: DENTAL LOCAL ANAESTHESIA
     Dosage: 6 POINTS INJECTION, HEATHLY INJECTION SITE??30G, 0,30X 12 MM (DENTAL NEEDLE)
     Route: 004
     Dates: start: 202009

REACTIONS (4)
  - Swollen tongue [Unknown]
  - Pain [Recovered/Resolved]
  - Injection site necrosis [Unknown]
  - Wrong technique in product usage process [Recovered/Resolved]

NARRATIVE: CASE EVENT DATE: 202009
